FAERS Safety Report 10227804 (Version 1)
Quarter: 2014Q2

REPORT INFORMATION
  Report Type: Spontaneous
  Country: US (occurrence: US)
  Receive Date: 20140610
  Receipt Date: 20140610
  Transmission Date: 20141212
  Serious: No
  Sender: FDA-Public Use
  Company Number: US-BAYER-2014-080561

PATIENT
  Age: 24 Year
  Sex: Female
  Weight: 82 kg

DRUGS (4)
  1. BETASERON [Suspect]
     Dosage: 0.3 MG, UNK
  2. VALTREX [Concomitant]
     Dosage: 500 MG, UNK
     Route: 048
  3. PROZAC [Concomitant]
     Dosage: 10 MG, UNK
     Route: 048
  4. WELLBUTRIN [Concomitant]
     Dosage: 100 MG, UNK
     Route: 048

REACTIONS (1)
  - Drug ineffective [Unknown]
